FAERS Safety Report 7937937-2 (Version None)
Quarter: 2011Q4

REPORT INFORMATION
  Report Type: 
  Country: None (occurrence: None)
  Receive Date: 20111123
  Receipt Date: 20111114
  Transmission Date: 20120403
  Serious: Yes (Hospitalization, Other)
  Sender: FDA-Public Use
  Company Number: US-ROCHE-697987

PATIENT
  Sex: Male
  Weight: 106.6 kg

DRUGS (16)
  1. AMNESTEEM [Suspect]
     Indication: ACNE
     Route: 065
     Dates: start: 20050425, end: 20050731
  2. REMICADE [Concomitant]
  3. VICODIN [Concomitant]
  4. TETRACYCLINE [Concomitant]
     Route: 048
  5. AZA [Concomitant]
     Indication: COLITIS ULCERATIVE
  6. IMODIUM [Concomitant]
     Indication: COLITIS ULCERATIVE
  7. AMBIEN [Concomitant]
  8. TRIDESILON [Concomitant]
  9. COLAZAL [Concomitant]
     Indication: COLITIS ULCERATIVE
  10. RETIN-A [Concomitant]
  11. CLOTRIMAZOLE [Concomitant]
  12. PERCOCET [Concomitant]
  13. NORTRIPTYLINE HCL [Concomitant]
  14. ACCUTANE [Suspect]
     Indication: ACNE
     Route: 048
     Dates: start: 20050425, end: 20050606
  15. ACCUTANE [Suspect]
     Route: 048
     Dates: start: 20050606, end: 20050731
  16. PREDNISONE TAB [Concomitant]
     Indication: COLITIS ULCERATIVE

REACTIONS (10)
  - INTESTINAL OBSTRUCTION [None]
  - DEPRESSION [None]
  - ACNE [None]
  - FOLLICULITIS [None]
  - INTESTINAL HAEMORRHAGE [None]
  - INFLAMMATORY BOWEL DISEASE [None]
  - COLITIS ULCERATIVE [None]
  - NAUSEA [None]
  - ARTHRALGIA [None]
  - ANAEMIA [None]
